FAERS Safety Report 9311405 (Version 1)
Quarter: 2013Q2

REPORT INFORMATION
  Report Type: Spontaneous
  Country: US (occurrence: US)
  Receive Date: 20130528
  Receipt Date: 20130528
  Transmission Date: 20140414
  Serious: Yes (Hospitalization)
  Sender: FDA-Public Use
  Company Number: US-BAYER-2013-064740

PATIENT
  Age: 35 Year
  Sex: Female
  Weight: 114 kg

DRUGS (7)
  1. YASMIN [Suspect]
  2. SINGULAIR [Concomitant]
  3. ZYRTEC [Concomitant]
  4. MULTIVITAMIN [Concomitant]
  5. ALBUTEROL [Concomitant]
  6. ADVAIR [Concomitant]
  7. TOPROL XL [Concomitant]

REACTIONS (2)
  - Pulmonary embolism [None]
  - Deep vein thrombosis [None]
